FAERS Safety Report 7498615-X (Version None)
Quarter: 2011Q2

REPORT INFORMATION
  Report Type: 
  Country: None (occurrence: None)
  Receive Date: 20110524
  Receipt Date: 20100406
  Transmission Date: 20111010
  Serious: No
  Sender: FDA-Public Use
  Company Number: US-BAYER-201019326NA

PATIENT
  Sex: Female

DRUGS (1)
  1. MIRENA [Suspect]
     Indication: CONTRACEPTION
     Dosage: 20 ?G/D, CONT
     Route: 015
     Dates: start: 20091001

REACTIONS (6)
  - HYPOMENORRHOEA [None]
  - AMENORRHOEA [None]
  - PROCEDURAL PAIN [None]
  - FEELING HOT [None]
  - ABDOMINAL PAIN LOWER [None]
  - ABDOMINAL PAIN [None]
